FAERS Safety Report 10269675 (Version 1)
Quarter: 2014Q2

REPORT INFORMATION
  Report Type: Spontaneous
  Country: IT (occurrence: None)
  Receive Date: 20140625
  Receipt Date: 20140625
  Transmission Date: 20141212
  Serious: Yes (Other)
  Sender: FDA-Public Use
  Company Number: AUR-APL-2014-06653

PATIENT
  Age: 53 Year
  Sex: Female

DRUGS (2)
  1. LEVETIRACETAM 1000MG (LEVETIRACETAM) UNKNOWN, 1000MG [Suspect]
     Indication: PARTIAL SEIZURES
     Dosage: TITRATED TO 1000 MG, TWICE A DAY, UNKNOWN
  2. TOPIRAMATE (TOPIRAMATE) [Concomitant]

REACTIONS (8)
  - Convulsion [None]
  - Abnormal behaviour [None]
  - Confusional state [None]
  - Disorientation [None]
  - Aphasia [None]
  - Abdominal pain [None]
  - Asthenia [None]
  - Somnolence [None]
